FAERS Safety Report 7546277-5 (Version None)
Quarter: 2011Q2

REPORT INFORMATION
  Report Type: 
  Country: None (occurrence: None)
  Receive Date: 20110614
  Receipt Date: 20040802
  Transmission Date: 20111010
  Serious: Yes (Death, Other)
  Sender: FDA-Public Use
  Company Number: PHFR2004GB02144

PATIENT
  Sex: Male

DRUGS (8)
  1. VALPROIC ACID [Concomitant]
     Dosage: 1000 MG/DAY
     Route: 048
  2. CLOZAPINE [Suspect]
     Dosage: 500 MG/DAY
     Route: 048
  3. CLOZAPINE [Suspect]
     Dosage: UNKNOWN
     Route: 048
     Dates: start: 19960524
  4. LITHIUM [Concomitant]
     Dosage: 800 MG/DAY
     Route: 048
  5. SENNA-MINT WAF [Concomitant]
     Dosage: UNKNOWN
     Route: 065
  6. LACTULOSE [Concomitant]
     Dosage: UNKNOWN
     Route: 048
  7. OMEPRAZOLE [Concomitant]
     Dosage: 200 MG/DAY
     Route: 048
  8. ALCOHOL [Suspect]
     Dosage: UNKNOWN

REACTIONS (6)
  - MALAISE [None]
  - HEPATITIS B VIRUS TEST POSITIVE [None]
  - HIV INFECTION [None]
  - BRONCHOPNEUMONIA [None]
  - HEPATIC CIRRHOSIS [None]
  - HEPATITIS C VIRUS TEST POSITIVE [None]
